FAERS Safety Report 9930053 (Version 2)
Quarter: 2015Q2

REPORT INFORMATION
  Report Type: Spontaneous
  Country: US (occurrence: US)
  Receive Date: 20140227
  Receipt Date: 20150415
  Transmission Date: 20150821
  Serious: Yes (Other)
  Sender: FDA-Public Use
  Company Number: US-AMGEN-USASP2013073596

PATIENT
  Age: 54 Year
  Sex: Female

DRUGS (1)
  1. ENBREL [Suspect]
     Active Substance: ETANERCEPT
     Indication: RHEUMATOID ARTHRITIS
     Dosage: 50 MG, QWK
     Route: 065
     Dates: start: 20130328

REACTIONS (12)
  - Blood triglycerides increased [Unknown]
  - Fall [Recovered/Resolved]
  - Hypertension [Recovered/Resolved]
  - Chest pain [Recovered/Resolved]
  - Influenza [Not Recovered/Not Resolved]
  - Lung infection [Recovered/Resolved]
  - Pain [Unknown]
  - Skeletal injury [Recovered/Resolved]
  - Gait disturbance [Unknown]
  - Rhinorrhoea [Recovered/Resolved]
  - Arthritis [Unknown]
  - Chest discomfort [Recovered/Resolved]

NARRATIVE: CASE EVENT DATE: 201310
